FAERS Safety Report 25934508 (Version 1)
Quarter: 2025Q4

REPORT INFORMATION
  Report Type: Spontaneous
  Country: EU (occurrence: EU)
  Receive Date: 20251017
  Receipt Date: 20251017
  Transmission Date: 20260118
  Serious: Yes (Hospitalization)
  Sender: NOVARTIS
  Company Number: None

PATIENT
  Age: 58 Year
  Sex: Male

DRUGS (3)
  1. ENTRESTO [Suspect]
     Active Substance: SACUBITRIL\VALSARTAN
     Indication: Intentional overdose
     Dosage: 6 DOSAGE FORM, ONCE/SINGLE
     Route: 048
     Dates: start: 20250907, end: 20250907
  2. OXAZEPAM [Suspect]
     Active Substance: OXAZEPAM
     Indication: Intentional overdose
     Dosage: 10 DOSAGE FORM, ONCE/SINGLE
     Route: 048
     Dates: start: 20250907, end: 20250907
  3. WARFARIN SODIUM [Suspect]
     Active Substance: WARFARIN SODIUM
     Indication: Intentional overdose
     Dosage: 1 DOSAGE FORM, ONCE/SINGLE
     Route: 048
     Dates: start: 20250907, end: 20250907

REACTIONS (3)
  - Hypotension [Recovered/Resolved]
  - Altered state of consciousness [Recovered/Resolved]
  - Poisoning deliberate [Recovered/Resolved]

NARRATIVE: CASE EVENT DATE: 20250907
